FAERS Safety Report 16625983 (Version 1)
Quarter: 2019Q3

REPORT INFORMATION
  Report Type: Spontaneous
  Country: FR (occurrence: FR)
  Receive Date: 20190724
  Receipt Date: 20190724
  Transmission Date: 20191004
  Serious: Yes (Hospitalization)
  Sender: FDA-Public Use
  Company Number: FR-TEVA-2019-FR-1082102

PATIENT
  Age: 48 Year
  Sex: Female

DRUGS (3)
  1. METHOTREXATE. [Suspect]
     Active Substance: METHOTREXATE
     Indication: RHEUMATOID ARTHRITIS
     Dosage: 135 MG
     Route: 058
     Dates: start: 201904
  2. PREDNISONE. [Suspect]
     Active Substance: PREDNISONE
     Indication: RHEUMATOID ARTHRITIS
     Dosage: 4 MG
     Route: 048
     Dates: start: 201904
  3. HULIO [Suspect]
     Active Substance: ADALIMUMAB
     Indication: RHEUMATOID ARTHRITIS
     Dosage: 1 INJ/15 J
     Route: 058
     Dates: start: 201905

REACTIONS (4)
  - Neck pain [Unknown]
  - Eye pain [Unknown]
  - Diplopia [Unknown]
  - Headache [Unknown]

NARRATIVE: CASE EVENT DATE: 20190608
